FAERS Safety Report 6240687-4 (Version None)
Quarter: 2009Q2

REPORT INFORMATION
  Report Type: 
  Country: None (occurrence: None)
  Receive Date: 20090623
  Receipt Date: 20090123
  Transmission Date: 20091009
  Serious: No
  Sender: FDA-Public Use
  Company Number: US-ASTRAZENECA-2009UW02172

PATIENT
  Age: 18093 Day
  Sex: Female

DRUGS (3)
  1. PULMICORT FLEXHALER [Suspect]
     Route: 055
     Dates: start: 20090122, end: 20090122
  2. PROAIR HFA [Suspect]
  3. COZAAR [Concomitant]

REACTIONS (4)
  - COUGH [None]
  - NERVOUSNESS [None]
  - PHARYNGEAL OEDEMA [None]
  - WHEEZING [None]
